FAERS Safety Report 24641667 (Version 1)
Quarter: 2024Q4

REPORT INFORMATION
  Report Type: Spontaneous
  Country: US (occurrence: None)
  Receive Date: 20241118
  Receipt Date: 20241118
  Transmission Date: 20250114
  Serious: Yes (Other)
  Sender: Public
  Company Number: None

PATIENT
  Age: 29 Year
  Sex: Female
  Weight: 99.9 kg

DRUGS (3)
  1. LITHIUM CARBONATE [Suspect]
     Active Substance: LITHIUM CARBONATE
     Indication: Product used for unknown indication
     Dates: start: 20241117, end: 20241118
  2. RISPERIDONE [Suspect]
     Active Substance: RISPERIDONE
     Indication: Product used for unknown indication
     Dates: start: 20241117, end: 20241118
  3. HYDROXYZINE DIHYDROCHLORIDE [Suspect]
     Active Substance: HYDROXYZINE DIHYDROCHLORIDE

REACTIONS (6)
  - Loss of consciousness [None]
  - Dizziness [None]
  - Hypersomnia [None]
  - Gait disturbance [None]
  - Discomfort [None]
  - Product dose omission in error [None]

NARRATIVE: CASE EVENT DATE: 20241117
